FAERS Safety Report 13726679 (Version 3)
Quarter: 2017Q3

REPORT INFORMATION
  Report Type: Report from Study
  Country: FR (occurrence: FR)
  Receive Date: 20170707
  Receipt Date: 20170720
  Transmission Date: 20171127
  Serious: Yes (Hospitalization)
  Sender: FDA-Public Use
  Company Number: FR-BEH-2017081962

PATIENT
  Age: 36 Year
  Sex: Male

DRUGS (3)
  1. PROGRAF [Suspect]
     Active Substance: TACROLIMUS\TACROLIMUS ANHYDROUS
     Indication: PROPHYLAXIS AGAINST TRANSPLANT REJECTION
     Dosage: 13 MG, UNK
     Route: 048
     Dates: start: 20170225
  2. MYFORTIC [Suspect]
     Active Substance: MYCOPHENOLATE SODIUM
     Indication: PROPHYLAXIS AGAINST TRANSPLANT REJECTION
     Dosage: 360 MG, QD
     Route: 048
     Dates: start: 20170324
  3. PRIVIGEN [Suspect]
     Active Substance: HUMAN IMMUNOGLOBULIN G
     Indication: PROPHYLAXIS AGAINST TRANSPLANT REJECTION
     Dosage: 60 G, QD
     Route: 042
     Dates: start: 20160604, end: 20161027

REACTIONS (1)
  - Bladder metaplasia [Not Recovered/Not Resolved]

NARRATIVE: CASE EVENT DATE: 20170530
